FAERS Safety Report 8252928-2 (Version None)
Quarter: 2012Q2

REPORT INFORMATION
  Report Type: 
  Country: None (occurrence: None)
  Receive Date: 20120402
  Receipt Date: 20120217
  Transmission Date: 20120825
  Serious: No
  Sender: FDA-Public Use
  Company Number: US-ABBOTT-12P-163-0905984-00

PATIENT
  Sex: Male

DRUGS (1)
  1. ANDROGEL [Suspect]
     Indication: BLOOD TESTOSTERONE DECREASED
     Route: 061
     Dates: start: 20111123, end: 20120115

REACTIONS (9)
  - ARTHRALGIA [None]
  - NIGHT SWEATS [None]
  - BLOOD FOLLICLE STIMULATING HORMONE DECREASED [None]
  - FATIGUE [None]
  - HEADACHE [None]
  - CHILLS [None]
  - BLOOD TESTOSTERONE INCREASED [None]
  - MYALGIA [None]
  - BLOOD LUTEINISING HORMONE DECREASED [None]
